FAERS Safety Report 6442948-2 (Version None)
Quarter: 2009Q4

REPORT INFORMATION
  Report Type: 
  Country: None (occurrence: None)
  Receive Date: 20091117
  Receipt Date: 20091112
  Transmission Date: 20100525
  Serious: Yes (Hospitalization)
  Sender: FDA-Public Use
  Company Number: GB-PFIZER INC-2009296553

PATIENT
  Age: 61 Year
  Sex: Female

DRUGS (2)
  1. HYDROCORTISONE ACETATE AND HYDROCORTISONE AND HYDROCORTISONE CIPIONATE [Suspect]
     Indication: ADDISON'S DISEASE
     Route: 048
  2. FLUDROCORTISONE ACETATE [Suspect]
     Indication: ADDISON'S DISEASE

REACTIONS (1)
  - SPINAL FUSION SURGERY [None]
